FAERS Safety Report 15310378 (Version 1)
Quarter: 2018Q3

REPORT INFORMATION
  Report Type: Spontaneous
  Country: DE (occurrence: DE)
  Receive Date: 20180823
  Receipt Date: 20180823
  Transmission Date: 20181010
  Serious: Yes (Hospitalization)
  Sender: FDA-Public Use
  Company Number: DE-IBIGEN-2018.04726

PATIENT
  Age: 75 Year
  Sex: Female

DRUGS (1)
  1. UNK [Suspect]
     Active Substance: UNSPECIFIED INGREDIENT
     Indication: ARTHRITIS INFECTIVE
     Route: 042

REACTIONS (3)
  - Pyrexia [Recovered/Resolved]
  - Rash generalised [Recovered/Resolved]
  - General physical health deterioration [Recovered/Resolved]
